FAERS Safety Report 9641411 (Version 1)
Quarter: 2013Q4

REPORT INFORMATION
  Report Type: Report from Study
  Country: US (occurrence: US)
  Receive Date: 20131023
  Receipt Date: 20131023
  Transmission Date: 20140711
  Serious: No
  Sender: FDA-Public Use
  Company Number: US-ABBVIE-13P-163-1137223-00

PATIENT
  Age: 31 Year
  Sex: Female
  Weight: 99.88 kg

DRUGS (10)
  1. LUPRON DEPOT [Suspect]
     Indication: UTERINE LEIOMYOMA
     Dosage: 1 DOSE
     Route: 030
     Dates: start: 20130717, end: 20130815
  2. LUPRON DEPOT [Suspect]
     Indication: MENOMETRORRHAGIA
  3. AMLODIPINE [Concomitant]
     Indication: HYPERTENSION
     Dosage: UNKNOWN DOSE
     Dates: end: 201308
  4. AMLODIPINE [Concomitant]
     Dosage: DOUBLED DOSE
     Dates: start: 201308
  5. HYDROCHLOROTHIAZIDE [Concomitant]
     Indication: PRODUCT USED FOR UNKNOWN INDICATION
     Dosage: UNKNOWN DOSE
     Dates: end: 201308
  6. HYDROCHLOROTHIAZIDE [Concomitant]
     Dosage: DOUBLED DOSE
     Dates: start: 201308
  7. CELEXA [Concomitant]
     Indication: PRODUCT USED FOR UNKNOWN INDICATION
  8. SAFYRAL [Concomitant]
     Indication: PRODUCT USED FOR UNKNOWN INDICATION
  9. METOPROLOL [Concomitant]
     Indication: PRODUCT USED FOR UNKNOWN INDICATION
     Dates: start: 201308
  10. AMBIEN [Concomitant]
     Indication: PRODUCT USED FOR UNKNOWN INDICATION

REACTIONS (4)
  - Blood pressure increased [Not Recovered/Not Resolved]
  - Nervousness [Unknown]
  - Insomnia [Not Recovered/Not Resolved]
  - Feeling abnormal [Unknown]
